FAERS Safety Report 6857907-5 (Version None)
Quarter: 2010Q3

REPORT INFORMATION
  Report Type: 
  Country: None (occurrence: None)
  Receive Date: 20100715
  Receipt Date: 20100702
  Transmission Date: 20110219
  Serious: Yes (Other)
  Sender: FDA-Public Use
  Company Number: 2010SP037605

PATIENT
  Age: 60 Year
  Sex: Female

DRUGS (3)
  1. CORICIDIN [Suspect]
     Dosage: 1 DF; Q6H; PO
     Route: 048
  2. AVAPRO [Suspect]
     Indication: HYPERTENSION
     Dosage: QD
  3. EVOXAC [Concomitant]

REACTIONS (2)
  - OBSTRUCTIVE AIRWAYS DISORDER [None]
  - SWOLLEN TONGUE [None]
